FAERS Safety Report 9828790 (Version 5)
Quarter: 2014Q2

REPORT INFORMATION
  Report Type: Report from Study
  Country: CA (occurrence: CA)
  Receive Date: 20140118
  Receipt Date: 20140528
  Transmission Date: 20141212
  Serious: Yes (Other)
  Sender: FDA-Public Use
  Company Number: CA-ROCHE-1303041

PATIENT
  Age: 68 Year
  Sex: Male
  Weight: 81 kg

DRUGS (13)
  1. ACTEMRA [Suspect]
     Indication: RHEUMATOID ARTHRITIS
     Route: 042
     Dates: start: 20130913
  2. METHOTREXATE [Suspect]
     Indication: RHEUMATOID ARTHRITIS
     Dosage: 5 OUT OF 7 DAYS
     Route: 065
  3. METHOTREXATE [Suspect]
     Route: 065
  4. VITAMIN B12 [Concomitant]
  5. SULFASALAZINE [Concomitant]
  6. PREDNISONE [Concomitant]
  7. NEXIUM [Concomitant]
  8. CRESTOR [Concomitant]
  9. PROZAC [Concomitant]
  10. FOLIC ACID [Concomitant]
  11. ACETYLSALICYLIC ACID [Concomitant]
  12. TYLENOL [Concomitant]
  13. TRIATEC (CODEINE PHOSPHATE/PARACETAMOL) [Concomitant]

REACTIONS (12)
  - Arthralgia [Not Recovered/Not Resolved]
  - Hot flush [Not Recovered/Not Resolved]
  - Nasal congestion [Recovered/Resolved]
  - Rhinorrhoea [Recovered/Resolved]
  - Cough [Recovered/Resolved]
  - Back pain [Recovered/Resolved]
  - Musculoskeletal pain [Recovered/Resolved]
  - Abdominal pain upper [Recovered/Resolved]
  - Fungal infection [Recovered/Resolved]
  - Tinnitus [Not Recovered/Not Resolved]
  - Mouth ulceration [Unknown]
  - Eye infection [Recovered/Resolved]
